FAERS Safety Report 10151291 (Version 2)
Quarter: 2014Q2

REPORT INFORMATION
  Report Type: Spontaneous
  Country: US (occurrence: US)
  Receive Date: 20140502
  Receipt Date: 20140502
  Transmission Date: 20141212
  Serious: No
  Sender: FDA-Public Use
  Company Number: US-ASTRAZENECA-2013SE68805

PATIENT
  Sex: Female

DRUGS (3)
  1. PRILOSEC OTC [Suspect]
     Indication: DRY THROAT
     Route: 048
     Dates: start: 20130903
  2. PRILOSEC OTC [Suspect]
     Indication: THROAT IRRITATION
     Route: 048
     Dates: start: 20130903
  3. GAVISCON [Concomitant]

REACTIONS (4)
  - Chest pain [Not Recovered/Not Resolved]
  - Chest discomfort [Not Recovered/Not Resolved]
  - Painful respiration [Not Recovered/Not Resolved]
  - Dyspepsia [Not Recovered/Not Resolved]
